FAERS Safety Report 14747982 (Version 2)
Quarter: 2018Q2

REPORT INFORMATION
  Report Type: Spontaneous
  Country: FR (occurrence: FR)
  Receive Date: 20180411
  Receipt Date: 20180517
  Transmission Date: 20180711
  Serious: Yes (Other)
  Sender: FDA-Public Use
  Company Number: FR-TEVA-2018-FR-879455

PATIENT
  Age: 23 Year
  Sex: Female

DRUGS (4)
  1. CLOZAPINE. [Interacting]
     Active Substance: CLOZAPINE
     Indication: SCHIZOAFFECTIVE DISORDER
     Route: 065
  2. OLANZAPINE. [Interacting]
     Active Substance: OLANZAPINE
     Indication: SCHIZOAFFECTIVE DISORDER
     Route: 065
  3. ARIPIPRAZOLE. [Suspect]
     Active Substance: ARIPIPRAZOLE
     Indication: SCHIZOAFFECTIVE DISORDER
     Dosage: GRADUALLY INTRODUCED OVER 18 DAYS AND INCREASED UPTO 30 MG/DAY
     Route: 065
  4. RISPERIDONE. [Interacting]
     Active Substance: RISPERIDONE
     Indication: SCHIZOAFFECTIVE DISORDER
     Route: 065

REACTIONS (3)
  - Agitation [Unknown]
  - Paradoxical drug reaction [Unknown]
  - Drug interaction [Unknown]
